FAERS Safety Report 7427041-4 (Version None)
Quarter: 2011Q2

REPORT INFORMATION
  Report Type: 
  Country: None (occurrence: None)
  Receive Date: 20110420
  Receipt Date: 20110412
  Transmission Date: 20111010
  Serious: Yes (Hospitalization)
  Sender: FDA-Public Use
  Company Number: JP-AMGEN-JPNCT2011020623

PATIENT
  Age: 85 Year
  Sex: Female
  Weight: 66 kg

DRUGS (10)
  1. PANITUMUMAB [Suspect]
     Indication: COLORECTAL CANCER
     Dosage: 6 MG/KG, Q2WK
     Route: 041
     Dates: start: 20100929, end: 20100929
  2. MYSER [Concomitant]
     Dosage: UNK
     Route: 062
  3. ARICEPT [Concomitant]
     Dosage: UNK
     Route: 048
  4. LANSOPRAZOLE OD [Concomitant]
     Dosage: UNK
     Route: 048
  5. AMOLIN 250 CAPSULES [Concomitant]
     Dosage: UNK
     Route: 048
  6. BLOPRESS TABLETS 8 [Concomitant]
     Dosage: UNK
     Route: 048
  7. MAGMITT [Concomitant]
     Dosage: UNK
     Route: 048
  8. ASPIRIN [Concomitant]
     Dosage: UNK
     Route: 048
  9. CLARITH [Concomitant]
     Dosage: UNK
     Route: 048
  10. UREPEARL CREAM [Concomitant]
     Dosage: UNK
     Route: 062

REACTIONS (5)
  - GASTRIC ULCER HAEMORRHAGE [None]
  - DERMATITIS [None]
  - DERMATITIS ACNEIFORM [None]
  - SKIN ULCER [None]
  - ENTEROCOLITIS [None]
